FAERS Safety Report 7305289-7 (Version None)
Quarter: 2011Q1

REPORT INFORMATION
  Report Type: 
  Country: None (occurrence: None)
  Receive Date: 20110222
  Receipt Date: 20110215
  Transmission Date: 20110831
  Serious: Yes (Death)
  Sender: FDA-Public Use
  Company Number: US-PFIZER INC-2010152210

PATIENT
  Sex: Male

DRUGS (5)
  1. ALPRAZOLAM [Suspect]
     Dosage: UNK
  2. LEVAMISOLE [Suspect]
     Dosage: UNK
  3. NICOTINE [Suspect]
     Dosage: UNK
  4. COCAINE [Suspect]
     Dosage: UNK
  5. OXYCODONE [Suspect]
     Dosage: UNK

REACTIONS (2)
  - ROAD TRAFFIC ACCIDENT [None]
  - INJURY [None]
